FAERS Safety Report 22896623 (Version 2)
Quarter: 2023Q4

REPORT INFORMATION
  Report Type: Spontaneous
  Country: US (occurrence: US)
  Receive Date: 20230901
  Receipt Date: 20231003
  Transmission Date: 20240110
  Serious: Yes (Death, Hospitalization, Disabling, Other)
  Sender: FDA-Public Use
  Company Number: US-GILEAD-2023-0641696

PATIENT
  Age: 57 Year
  Sex: Male
  Weight: 132 kg

DRUGS (12)
  1. YESCARTA [Suspect]
     Active Substance: AXICABTAGENE CILOLEUCEL
     Indication: B-cell lymphoma
     Dosage: 68 ML
     Route: 041
     Dates: start: 20220601, end: 20220601
  2. CYTOXAN [Concomitant]
     Active Substance: CYCLOPHOSPHAMIDE
     Indication: Lymphodepletion
     Dosage: UNK
     Dates: start: 20220519, end: 20220520
  3. FLUDARABINE [Concomitant]
     Active Substance: FLUDARABINE PHOSPHATE
     Indication: Lymphodepletion
     Dosage: UNK
     Dates: start: 20220519, end: 20220520
  4. ALLOPURINOL [Concomitant]
     Active Substance: ALLOPURINOL
  5. ACYCLOVIR [Concomitant]
     Active Substance: ACYCLOVIR
  6. OXYCODONE [Concomitant]
     Active Substance: OXYCODONE
  7. POLYETHYLENE GLYCOLS [Concomitant]
     Active Substance: POLYETHYLENE GLYCOLS
  8. KEPPRA [Concomitant]
     Active Substance: LEVETIRACETAM
  9. MEROPENEM [Concomitant]
     Active Substance: MEROPENEM
     Indication: Clostridium difficile infection
     Dosage: UNK
     Dates: start: 20220517
  10. LINEZOLID [Concomitant]
     Active Substance: LINEZOLID
     Indication: Clostridium difficile infection
     Dosage: UNK
     Dates: start: 20220517
  11. ANIDULAFUNGIN [Concomitant]
     Active Substance: ANIDULAFUNGIN
     Indication: Clostridium difficile infection
     Dosage: UNK
     Dates: start: 20220517
  12. VANCOMYCIN [Concomitant]
     Active Substance: VANCOMYCIN
     Indication: Clostridium difficile infection
     Dosage: UNK
     Dates: start: 20220517

REACTIONS (7)
  - Immune effector cell-associated neurotoxicity syndrome [Fatal]
  - Enterococcal sepsis [Unknown]
  - Lymphoma [Unknown]
  - Sepsis [Unknown]
  - Infection [Unknown]
  - Cytokine release syndrome [Recovered/Resolved]
  - Human herpesvirus 6 infection [Unknown]

NARRATIVE: CASE EVENT DATE: 20220602
